FAERS Safety Report 4431788-1 (Version None)
Quarter: 2004Q3

REPORT INFORMATION
  Report Type: 
  Country: None (occurrence: None)
  Receive Date: 20040818
  Receipt Date: 20040802
  Transmission Date: 20050211
  Serious: Yes (Hospitalization)
  Sender: FDA-Public Use
  Company Number: DSA_80941_2004

PATIENT
  Age: 71 Year
  Sex: Female
  Weight: 79.8331 kg

DRUGS (11)
  1. XYREM [Suspect]
     Indication: CATAPLEXY
     Dosage: 4.5 G NIGHTLY PO
     Route: 048
     Dates: start: 20030205, end: 20030217
  2. RITALIN [Concomitant]
  3. CLOMIPRAMINE HCL [Concomitant]
  4. PROTONIX [Concomitant]
  5. LISINOPRIL [Concomitant]
  6. NORVASC [Concomitant]
  7. ACTOS [Concomitant]
  8. SENNA [Concomitant]
  9. ASPIRIN [Concomitant]
  10. GEMFIBROZIL [Concomitant]
  11. CELEBREX [Concomitant]

REACTIONS (23)
  - ABNORMAL DREAMS [None]
  - AMNESTIC DISORDER [None]
  - BALANCE DISORDER [None]
  - BLOOD ALBUMIN DECREASED [None]
  - BLOOD GLUCOSE INCREASED [None]
  - BLOOD POTASSIUM DECREASED [None]
  - BLOOD UREA INCREASED [None]
  - CLUMSINESS [None]
  - CONFUSIONAL STATE [None]
  - DISORIENTATION [None]
  - DYSPHONIA [None]
  - ELECTROENCEPHALOGRAM ABNORMAL [None]
  - HEARING IMPAIRED [None]
  - HYPERREFLEXIA [None]
  - MEAN PLATELET VOLUME INCREASED [None]
  - MEMORY IMPAIRMENT [None]
  - MYOCLONUS [None]
  - NERVOUS SYSTEM DISORDER [None]
  - PLATELET COUNT DECREASED [None]
  - RED BLOOD CELL COUNT DECREASED [None]
  - SENSORY LOSS [None]
  - TREMOR [None]
  - URINE ANALYSIS ABNORMAL [None]
